FAERS Safety Report 17616326 (Version 2)
Quarter: 2020Q2

REPORT INFORMATION
  Report Type: Spontaneous
  Country: IT (occurrence: IT)
  Receive Date: 20200402
  Receipt Date: 20200504
  Transmission Date: 20200713
  Serious: Yes (Life-Threatening)
  Sender: FDA-Public Use
  Company Number: IT-ACCORD-177890

PATIENT
  Age: 51 Year
  Sex: Male
  Weight: 100 kg

DRUGS (4)
  1. ALLOPURINOL. [Suspect]
     Active Substance: ALLOPURINOL
     Indication: HYPERURICAEMIA
     Route: 048
  2. PARACETAMOL [Suspect]
     Active Substance: ACETAMINOPHEN
     Indication: PAIN
  3. BRUFEN [Suspect]
     Active Substance: IBUPROFEN
     Indication: HYPERPYREXIA
     Dosage: STRENGTH: 600 MG COATED TABLETS
     Route: 048
  4. COUMADIN [Concomitant]
     Active Substance: WARFARIN SODIUM
     Indication: ATRIAL FIBRILLATION
     Dosage: STRENGTH: 5 MG
     Route: 048

REACTIONS (3)
  - Chronic kidney disease [Recovering/Resolving]
  - Hepatitis toxic [Recovering/Resolving]
  - Dermatitis exfoliative [Recovering/Resolving]

NARRATIVE: CASE EVENT DATE: 20180110
